FAERS Safety Report 8413732-5 (Version None)
Quarter: 2012Q2

REPORT INFORMATION
  Report Type: 
  Country: None (occurrence: None)
  Receive Date: 20120605
  Receipt Date: 20120529
  Transmission Date: 20120825
  Serious: Yes (Hospitalization)
  Sender: FDA-Public Use
  Company Number: FR-PFIZER INC-2012128458

PATIENT
  Age: 66 Year
  Sex: Female

DRUGS (10)
  1. LAMICTAL [Suspect]
     Indication: EPILEPSY
     Dosage: 100 MG, 2X/DAY
     Route: 048
     Dates: start: 20000101
  2. LEVOTHYROXINE SODIUM [Concomitant]
     Dosage: UNK
  3. SINGULAIR [Concomitant]
     Dosage: UNK
  4. FUROSEMIDE [Concomitant]
     Dosage: UNK
  5. CLINDAMYCIN HCL [Suspect]
     Indication: BETA HAEMOLYTIC STREPTOCOCCAL INFECTION
     Dosage: 600 MG, 2X/DAY
     Route: 048
     Dates: start: 20120319
  6. TRANXENE [Concomitant]
     Dosage: UNK
  7. LYRICA [Suspect]
     Dosage: 150 MG
  8. ENDOTELON [Concomitant]
     Dosage: UNK
  9. RIFADIN [Suspect]
     Indication: BETA HAEMOLYTIC STREPTOCOCCAL INFECTION
     Dosage: 600 MG, TWICE EVERY 2 DAYS
     Route: 048
     Dates: start: 20120319
  10. OXAZEPAM [Concomitant]
     Dosage: UNK

REACTIONS (1)
  - STATUS EPILEPTICUS [None]
